FAERS Safety Report 21279451 (Version 1)
Quarter: 2022Q3

REPORT INFORMATION
  Report Type: Report from Study
  Country: CN (occurrence: CN)
  Receive Date: 20220901
  Receipt Date: 20220901
  Transmission Date: 20221027
  Serious: Yes (Other)
  Sender: FDA-Public Use
  Company Number: CN-SUN PHARMACEUTICAL INDUSTRIES LTD-2022R1-353199

PATIENT
  Age: 56 Year
  Sex: Female

DRUGS (5)
  1. LENALIDOMIDE [Suspect]
     Active Substance: LENALIDOMIDE
     Indication: Central nervous system lymphoma
     Dosage: 25 MILLIGRAM, DAILY
     Route: 065
     Dates: start: 20210222, end: 20210810
  2. TEMOZOLOMIDE [Suspect]
     Active Substance: TEMOZOLOMIDE
     Indication: Central nervous system lymphoma
     Dosage: 150 MILLIGRAM/SQ. METER, DAILY (ON DAYS 4 TO 8,EVERY 4 WEEKS)
     Route: 065
     Dates: start: 20210222, end: 20210810
  3. METHOTREXATE [Suspect]
     Active Substance: METHOTREXATE
     Indication: Central nervous system lymphoma
     Dosage: UNK ((3.5 G/M2) OVER 4 HOURS ON DAY 2,EVERY 4 WEEKS)
     Route: 065
     Dates: start: 20210222, end: 20210810
  4. ORELABRUTINIB [Suspect]
     Active Substance: ORELABRUTINIB
     Indication: Central nervous system lymphoma
     Dosage: 150 MILLIGRAM, DAILY
     Route: 048
     Dates: start: 20210222, end: 20210810
  5. RITUXIMAB [Suspect]
     Active Substance: RITUXIMAB
     Indication: Central nervous system lymphoma
     Dosage: UNK (375 MG/M2 ON DAY 1, EVERY 4 WEEKS)
     Route: 042
     Dates: start: 20210222, end: 20210810

REACTIONS (1)
  - Disease progression [Unknown]
